FAERS Safety Report 16881687 (Version 2)
Quarter: 2019Q4

REPORT INFORMATION
  Report Type: Spontaneous
  Country: CO (occurrence: CO)
  Receive Date: 20191003
  Receipt Date: 20191221
  Transmission Date: 20200122
  Serious: Yes (Death, Hospitalization)
  Sender: FDA-Public Use
  Company Number: CO-TAKEDA-2019TUS049183

PATIENT
  Age: 34 Year
  Sex: Male
  Weight: 43 kg

DRUGS (1)
  1. ENTYVIO [Suspect]
     Active Substance: VEDOLIZUMAB
     Indication: COLITIS ULCERATIVE
     Dosage: 300 MILLIGRAM
     Route: 042
     Dates: start: 20190812, end: 20190925

REACTIONS (7)
  - Colitis ulcerative [Fatal]
  - Frequent bowel movements [Unknown]
  - Vomiting [Unknown]
  - Asthenia [Unknown]
  - Diarrhoea [Unknown]
  - Pyrexia [Unknown]
  - Decreased appetite [Unknown]

NARRATIVE: CASE EVENT DATE: 20190812
